FAERS Safety Report 6054946-1 (Version None)
Quarter: 2009Q1

REPORT INFORMATION
  Report Type: 
  Country: None (occurrence: None)
  Receive Date: 20090128
  Receipt Date: 20090123
  Transmission Date: 20090719
  Serious: Yes (Death, Hospitalization)
  Sender: FDA-Public Use
  Company Number: PHBS2009IN00612

PATIENT
  Age: 73 Year
  Sex: Male

DRUGS (4)
  1. CARBAMAZEPINE [Suspect]
     Indication: DIABETIC NEUROPATHY
  2. ORAL ANTIDIABETICS [Concomitant]
     Indication: DIABETES MELLITUS
  3. ANTIHYPERTENSIVES [Concomitant]
     Indication: HYPERTENSION
  4. LIPID MODIFYING AGENTS [Concomitant]
     Indication: DYSLIPIDAEMIA

REACTIONS (25)
  - ANAPLASTIC LARGE CELL LYMPHOMA T- AND NULL-CELL TYPES [None]
  - BIOPSY SKIN ABNORMAL [None]
  - BLOOD LACTATE DEHYDROGENASE ABNORMAL [None]
  - BLOOD LACTATE DEHYDROGENASE INCREASED [None]
  - BLOOD PHOSPHORUS ABNORMAL [None]
  - BREATH SOUNDS ABNORMAL [None]
  - DRUG RASH WITH EOSINOPHILIA AND SYSTEMIC SYMPTOMS [None]
  - FATIGUE [None]
  - GENERAL PHYSICAL HEALTH DETERIORATION [None]
  - GENERALISED ERYTHEMA [None]
  - HYPERKALAEMIA [None]
  - HYPERURICAEMIA [None]
  - HYPONATRAEMIA [None]
  - LEUKOCYTOSIS [None]
  - LYMPHADENOPATHY [None]
  - MULTI-ORGAN DISORDER [None]
  - PITTING OEDEMA [None]
  - PLEURAL EFFUSION [None]
  - RASH PAPULAR [None]
  - RENAL FAILURE ACUTE [None]
  - SKIN EXFOLIATION [None]
  - SKIN PLAQUE [None]
  - SOMNOLENCE [None]
  - TUMOUR LYSIS SYNDROME [None]
  - WEIGHT DECREASED [None]
